FAERS Safety Report 5466694-7 (Version None)
Quarter: 2007Q3

REPORT INFORMATION
  Report Type: 
  Country: None (occurrence: None)
  Receive Date: 20070920
  Receipt Date: 20070831
  Transmission Date: 20080115
  Serious: Yes (Hospitalization)
  Sender: FDA-Public Use
  Company Number: 6037618

PATIENT
  Age: 61 Year
  Sex: Male

DRUGS (10)
  1. METFORMIN HCL [Suspect]
     Indication: TYPE 2 DIABETES MELLITUS
     Dosage: 1700 MG; ORAL
     Route: 048
     Dates: end: 20070613
  2. ACOMPLIA [Suspect]
     Indication: TYPE 2 DIABETES MELLITUS
     Dosage: 20 MG; ORAL
     Route: 048
     Dates: start: 20070601, end: 20070613
  3. AMLODIPINE [Concomitant]
  4. BISOPROLOL FUMARATE [Concomitant]
  5. PERINDOPRIL ERBUMINE [Concomitant]
  6. FENOFIBRATE [Concomitant]
  7. FLUOXETINE [Concomitant]
  8. INSULIN            (INSULIN) [Concomitant]
  9. OMEPRAZOLE [Concomitant]
  10. SIMVASTATIN [Concomitant]

REACTIONS (3)
  - DEHYDRATION [None]
  - DIARRHOEA [None]
  - RENAL IMPAIRMENT [None]
